FAERS Safety Report 16677433 (Version 1)
Quarter: 2019Q3

REPORT INFORMATION
  Report Type: Report from Study
  Country: US (occurrence: US)
  Receive Date: 20190807
  Receipt Date: 20190807
  Transmission Date: 20191004
  Serious: Yes (Hospitalization)
  Sender: FDA-Public Use
  Company Number: US-BAYER-2019-141525

PATIENT
  Age: 73 Year
  Sex: Male

DRUGS (1)
  1. STIVARGA [Suspect]
     Active Substance: REGORAFENIB
     Dosage: 160 MG DAILY DAYS 1-21, OFF 7 DAYS
     Dates: end: 20190715

REACTIONS (1)
  - Intestinal prolapse [None]

NARRATIVE: CASE EVENT DATE: 20190714
